FAERS Safety Report 24778382 (Version 2)
Quarter: 2025Q1

REPORT INFORMATION
  Report Type: Report from Study
  Country: US (occurrence: US)
  Receive Date: 20241226
  Receipt Date: 20250123
  Transmission Date: 20250409
  Serious: Yes (Other)
  Sender: BRISTOL-MYERS SQUIBB COMPANY
  Company Number: US-BRISTOL-MYERS SQUIBB COMPANY-2024-194757

PATIENT
  Age: 72 Year
  Sex: Female

DRUGS (4)
  1. BREYANZI [Suspect]
     Active Substance: LISOCABTAGENE MARALEUCEL
     Indication: Diffuse large B-cell lymphoma recurrent
     Route: 042
     Dates: start: 20241113
  2. BREYANZI [Suspect]
     Active Substance: LISOCABTAGENE MARALEUCEL
     Indication: Diffuse large B-cell lymphoma refractory
  3. FLUDARABINE [Concomitant]
     Active Substance: FLUDARABINE PHOSPHATE
     Indication: Lymphodepletion
     Dosage: 24 GM/M2/DAY X 3 DAYS (08-NOV-2024 -10-NOV-2024, DAYS, -5, -4 AND -3)
     Route: 042
     Dates: start: 20241108, end: 20241110
  4. CYCLOPHOSPHAMIDE [Concomitant]
     Active Substance: CYCLOPHOSPHAMIDE
     Indication: Lymphodepletion
     Dosage: 225 GM/M2/DAY X 3 DAYS (08-NOV-2024 -10-NOV-2024, DAYS, -5, -4 AND -3)
     Route: 042
     Dates: start: 20241108, end: 20241110

REACTIONS (1)
  - Coma [Unknown]

NARRATIVE: CASE EVENT DATE: 20241213
